FAERS Safety Report 15934612 (Version 1)
Quarter: 2019Q1

REPORT INFORMATION
  Report Type: Spontaneous
  Country: DE (occurrence: DE)
  Receive Date: 20190207
  Receipt Date: 20190207
  Transmission Date: 20190417
  Serious: Yes (Other)
  Sender: FDA-Public Use
  Company Number: PHHY2019DE027903

PATIENT
  Age: 50 Year
  Sex: Female

DRUGS (1)
  1. CLARITHROMYCIN 1A PHARMA [Suspect]
     Active Substance: CLARITHROMYCIN
     Indication: PRODUCT USED FOR UNKNOWN INDICATION
     Dosage: 1 DF, BID (1-0-1)
     Route: 065

REACTIONS (4)
  - Nausea [Unknown]
  - Circulatory collapse [Unknown]
  - Vomiting [Unknown]
  - Dizziness [Unknown]
